FAERS Safety Report 6506674-3 (Version None)
Quarter: 2009Q4

REPORT INFORMATION
  Report Type: 
  Country: None (occurrence: None)
  Receive Date: 20091221
  Receipt Date: 20091209
  Transmission Date: 20100525
  Serious: Yes (Other)
  Sender: FDA-Public Use
  Company Number: US-ROCHE-662044

PATIENT
  Sex: Male
  Weight: 117.9 kg

DRUGS (1)
  1. CAPECITABINE [Suspect]
     Dosage: 02 WEEKS ON AND 01 WEEK OFF
     Route: 048
     Dates: start: 20090803, end: 20091009

REACTIONS (3)
  - MALIGNANT NEOPLASM PROGRESSION [None]
  - MUCOSAL INFLAMMATION [None]
  - NEUROPATHY PERIPHERAL [None]
